FAERS Safety Report 4889153-9 (Version None)
Quarter: 2005Q4

REPORT INFORMATION
  Report Type: 
  Country: None (occurrence: None)
  Receive Date: 20051215
  Receipt Date: 20041116
  Transmission Date: 20060501
  Serious: Yes (Other)
  Sender: FDA-Public Use
  Company Number: 2004089456

PATIENT
  Age: 72 Year
  Sex: Male
  Weight: 88.4514 kg

DRUGS (2)
  1. BEXTRA [Suspect]
     Indication: ARTHRALGIA
     Dosage: 20 MG (10 MG, 2 IN 1D),ORAL
     Route: 048
     Dates: start: 20041001, end: 20041103
  2. PRAVASTATIN [Concomitant]
     Dates: start: 20041001, end: 20041103

REACTIONS (1)
  - HEART RATE INCREASED [None]
